FAERS Safety Report 10585358 (Version 1)
Quarter: 2014Q4

REPORT INFORMATION
  Report Type: Spontaneous
  Country: AU (occurrence: None)
  Receive Date: 20141113
  Receipt Date: 20141113
  Transmission Date: 20150529
  Serious: Yes (Other)
  Sender: FDA-Public Use
  Company Number: AU2014GSK013851

PATIENT

DRUGS (1)
  1. ABACAVIR [Suspect]
     Active Substance: ABACAVIR
     Indication: ILL-DEFINED DISORDER

REACTIONS (1)
  - Acute myocardial infarction [None]
